FAERS Safety Report 5119368-6 (Version None)
Quarter: 2006Q4

REPORT INFORMATION
  Report Type: 
  Country: None (occurrence: None)
  Receive Date: 20061002
  Receipt Date: 20061002
  Transmission Date: 20070319
  Serious: No
  Sender: FDA-Public Use
  Company Number: None

PATIENT

DRUGS (6)
  1. KAOPECTATE [Suspect]
  2. CODICLEAR DH [Suspect]
  3. ENTEX LA [Suspect]
  4. ENTEX PSE [Suspect]
  5. LIBRAX [Suspect]
  6. DURATUSS [Suspect]

REACTIONS (1)
  - PHARMACEUTICAL PRODUCT COMPLAINT [None]
